FAERS Safety Report 14143241 (Version 2)
Quarter: 2017Q4

REPORT INFORMATION
  Report Type: Spontaneous
  Country: US (occurrence: US)
  Receive Date: 20171030
  Receipt Date: 20171121
  Transmission Date: 20180321
  Serious: Yes (Hospitalization)
  Sender: FDA-Public Use
  Company Number: US-BAUSCH-BL-2017-030147

PATIENT
  Age: 52 Year
  Sex: Male
  Weight: 130.75 kg

DRUGS (1)
  1. PROVENGE [Suspect]
     Active Substance: SIPULEUCEL-T
     Indication: PROSTATE CANCER
     Route: 042
     Dates: start: 20171012, end: 20171012

REACTIONS (5)
  - Malaise [Unknown]
  - Hypoxia [Unknown]
  - Septic shock [Recovering/Resolving]
  - Fluid retention [Unknown]
  - Sleep disorder [Unknown]

NARRATIVE: CASE EVENT DATE: 2017
